FAERS Safety Report 8540067-2 (Version None)
Quarter: 2012Q3

REPORT INFORMATION
  Report Type: 
  Country: None (occurrence: None)
  Receive Date: 20120726
  Receipt Date: 20070611
  Transmission Date: 20120928
  Serious: Yes (Other)
  Sender: FDA-Public Use
  Company Number: CO-PFIZER INC-2012179509

PATIENT
  Age: 72 Year
  Sex: Female

DRUGS (4)
  1. OLMESARTAN MEDOXOMIL AND HYDROCHLOROTHIZIDE [Suspect]
     Indication: HYPERTENSION
     Dosage: 30 MG, ONCE DAILY
     Route: 048
  2. LIPITOR [Suspect]
     Indication: DYSLIPIDAEMIA
     Dosage: 30 MG, ONCE DAILY
     Route: 048
  3. AMLODIPINE [Concomitant]
     Dosage: 60 MG, TWICE DAILY
     Route: 048
  4. INSULIN [Concomitant]
     Dosage: 15 UNK, ONCE DAILY

REACTIONS (1)
  - ACUTE MYOCARDIAL INFARCTION [None]
